FAERS Safety Report 7780103-4 (Version None)
Quarter: 2011Q3

REPORT INFORMATION
  Report Type: 
  Country: None (occurrence: None)
  Receive Date: 20110927
  Receipt Date: 20110404
  Transmission Date: 20111222
  Serious: No
  Sender: FDA-Public Use
  Company Number: US-BAYER-2011-029359

PATIENT
  Sex: Male

DRUGS (9)
  1. DICLOFENAC [Concomitant]
     Dosage: 75 MG, UNK
  2. CENTRAX [Concomitant]
     Dosage: 150 MG, UNK
  3. FLUCONAZOLE [Concomitant]
     Dosage: 200 MG, UNK
  4. BERODUAL [Concomitant]
     Dosage: 0.5 MG, UNK
  5. ALENDRONATE SODIUM [Concomitant]
     Dosage: 70 MG, UNK
  6. SPIRONOLACTONE [Concomitant]
     Dosage: 25 MG, UNK
  7. NEXAVAR [Suspect]
     Dosage: UNK UNK, TID
     Route: 048
     Dates: start: 20110315, end: 20110702
  8. PANTOPRAZOLE [Concomitant]
     Dosage: 40 MG, UNK
  9. REVITALOSE C 1000 [Concomitant]

REACTIONS (3)
  - DRUG INEFFECTIVE [None]
  - FATIGUE [None]
  - NAUSEA [None]
